FAERS Safety Report 19640351 (Version 1)
Quarter: 2021Q3

REPORT INFORMATION
  Report Type: Spontaneous
  Country: US (occurrence: US)
  Receive Date: 20210730
  Receipt Date: 20210730
  Transmission Date: 20211014
  Serious: No
  Sender: FDA-Public Use
  Company Number: US-DENTSPLY PHARMACEUTICAL-2021SCDP000038

PATIENT
  Sex: Female

DRUGS (1)
  1. LIDOCAINE. [Suspect]
     Active Substance: LIDOCAINE
     Indication: PROCEDURAL PAIN
     Dosage: 5% LIDOCAINE PATCHES

REACTIONS (1)
  - Drug ineffective [Unknown]
